FAERS Safety Report 5931833-8 (Version None)
Quarter: 2008Q4

REPORT INFORMATION
  Report Type: 
  Country: None (occurrence: None)
  Receive Date: 20081027
  Receipt Date: 20081021
  Transmission Date: 20090506
  Serious: Yes (Other)
  Sender: FDA-Public Use
  Company Number: JP-BAXTER-2008BH011244

PATIENT
  Age: 4 Year
  Sex: Female

DRUGS (3)
  1. ENDOXAN JAPAN [Suspect]
     Indication: BRAIN NEOPLASM
     Dosage: DOSE UNIT:UNKNOWN
     Route: 042
  2. LASTET [Suspect]
     Indication: BRAIN NEOPLASM
     Route: 042
  3. ONCOVIN [Concomitant]
     Indication: DRUG USE FOR UNKNOWN INDICATION
     Route: 042

REACTIONS (2)
  - HYPONATRAEMIA [None]
  - SHOCK [None]
